FAERS Safety Report 6475121-2 (Version None)
Quarter: 2009Q4

REPORT INFORMATION
  Report Type: 
  Country: None (occurrence: None)
  Receive Date: 20091204
  Receipt Date: 20090417
  Transmission Date: 20100525
  Serious: Yes (Death)
  Sender: FDA-Public Use
  Company Number: US-ELI_LILLY_AND_COMPANY-US200903007419

PATIENT
  Sex: Male

DRUGS (5)
  1. BYETTA [Suspect]
     Indication: TYPE 2 DIABETES MELLITUS
     Dosage: 5 UG, 2/D
     Route: 058
     Dates: start: 20080317, end: 20080522
  2. BYETTA [Suspect]
     Dosage: 10 UG, 2/D
     Route: 058
     Dates: start: 20080523
  3. GLUCOPHAGE [Concomitant]
     Dosage: UNK, UNKNOWN
  4. JANUVIA [Concomitant]
     Dosage: UNK, UNKNOWN
  5. DIABETA [Concomitant]
     Dosage: UNK, UNKNOWN

REACTIONS (3)
  - GAIT DISTURBANCE [None]
  - MYOCARDIAL INFARCTION [None]
  - VOMITING [None]
